FAERS Safety Report 7446525-6 (Version None)
Quarter: 2011Q2

REPORT INFORMATION
  Report Type: 
  Country: None (occurrence: None)
  Receive Date: 20110429
  Receipt Date: 20100721
  Transmission Date: 20111010
  Serious: No
  Sender: FDA-Public Use
  Company Number: US-ASTRAZENECA-2010SE34061

PATIENT
  Age: 69 Year
  Sex: Female
  Weight: 99.3 kg

DRUGS (4)
  1. LASIX [Concomitant]
  2. NEXIUM [Suspect]
     Route: 048
     Dates: start: 20100709
  3. VITAMIN D [Concomitant]
  4. PRINIVIL [Concomitant]

REACTIONS (5)
  - PRURITUS GENERALISED [None]
  - POLLAKIURIA [None]
  - OEDEMA PERIPHERAL [None]
  - JOINT SWELLING [None]
  - WRONG TECHNIQUE IN DRUG USAGE PROCESS [None]
